FAERS Safety Report 4687575-2 (Version None)
Quarter: 2005Q2

REPORT INFORMATION
  Report Type: 
  Country: None (occurrence: None)
  Receive Date: 20050610
  Receipt Date: 20050531
  Transmission Date: 20051028
  Serious: Yes (Death)
  Sender: FDA-Public Use
  Company Number: FR-BRISTOL-MYERS SQUIBB COMPANY-12990008

PATIENT
  Age: 36 Year
  Sex: Male
  Weight: 75 kg

DRUGS (3)
  1. ABILIFY [Suspect]
     Indication: PSYCHOTIC DISORDER
     Route: 048
     Dates: start: 20050301, end: 20050401
  2. XANAX [Concomitant]
  3. TERCIAN [Concomitant]

REACTIONS (1)
  - DROWNING [None]
